FAERS Safety Report 7499377-2 (Version None)
Quarter: 2011Q2

REPORT INFORMATION
  Report Type: 
  Country: None (occurrence: None)
  Receive Date: 20110524
  Receipt Date: 20110512
  Transmission Date: 20111010
  Serious: Yes (Hospitalization, Other)
  Sender: FDA-Public Use
  Company Number: US-AMGEN-USASP2011024677

PATIENT
  Age: 61 Year
  Sex: Female

DRUGS (1)
  1. ENBREL [Suspect]
     Indication: RHEUMATOID ARTHRITIS
     Dosage: 50 MG, QWK
     Dates: start: 20040101

REACTIONS (10)
  - WEIGHT INCREASED [None]
  - EXCORIATION [None]
  - HEAD INJURY [None]
  - FALL [None]
  - PULMONARY THROMBOSIS [None]
  - CONTUSION [None]
  - COSTOCHONDRITIS [None]
  - RHEUMATOID ARTHRITIS [None]
  - ADDISON'S DISEASE [None]
  - INJECTION SITE PAIN [None]
